FAERS Safety Report 12377136 (Version 1)
Quarter: 2016Q2

REPORT INFORMATION
  Report Type: Spontaneous
  Country: US (occurrence: US)
  Receive Date: 20160517
  Receipt Date: 20160517
  Transmission Date: 20160815
  Serious: No
  Sender: FDA-Public Use
  Company Number: US-MALLINCKRODT-T201504597

PATIENT
  Sex: Female

DRUGS (1)
  1. H.P. ACTHAR [Suspect]
     Active Substance: CORTICOTROPIN
     Indication: POLYMYOSITIS
     Dosage: UNK
     Route: 065
     Dates: start: 201509

REACTIONS (2)
  - Vomiting [Unknown]
  - Swollen tongue [Unknown]

NARRATIVE: CASE EVENT DATE: 201509
